FAERS Safety Report 5025905-2 (Version None)
Quarter: 2006Q2

REPORT INFORMATION
  Report Type: 
  Country: None (occurrence: None)
  Receive Date: 20060612
  Receipt Date: 20060612
  Transmission Date: 20061013
  Serious: Yes (Other)
  Sender: FDA-Public Use
  Company Number: None

PATIENT
  Age: 39 Year
  Sex: Female

DRUGS (7)
  1. CECLOR [Suspect]
     Dosage: 500 MG TID
     Dates: start: 20050505, end: 20050507
  2. CEPHALOSPORINS [Concomitant]
  3. CEFZIL [Concomitant]
  4. LEVORA 0.15/30-21 [Concomitant]
  5. ADVAIR DISKUS 100/50 [Concomitant]
  6. ALLEGRA [Concomitant]
  7. RHINOCORT [Concomitant]

REACTIONS (16)
  - ABDOMINAL TENDERNESS [None]
  - ASTHENIA [None]
  - BILIRUBIN CONJUGATED INCREASED [None]
  - BLOOD BILIRUBIN INCREASED [None]
  - FATIGUE [None]
  - FEELING ABNORMAL [None]
  - HYPERSENSITIVITY [None]
  - IMPAIRED WORK ABILITY [None]
  - JAUNDICE [None]
  - LIVER DISORDER [None]
  - LYMPHADENOPATHY [None]
  - OCULAR ICTERUS [None]
  - PRURITUS [None]
  - RASH [None]
  - SWELLING FACE [None]
  - URTICARIA [None]
